FAERS Safety Report 15296639 (Version 1)
Quarter: 2018Q3

REPORT INFORMATION
  Report Type: Report from Study
  Country: None (occurrence: BR)
  Receive Date: 20180820
  Receipt Date: 20180820
  Transmission Date: 20181010
  Serious: Yes (Other)
  Sender: FDA-Public Use
  Company Number: BR-ABBVIE-15K-020-1421328-00

PATIENT
  Age: 37 Year
  Sex: Male
  Weight: 82 kg

DRUGS (4)
  1. AZATHIOPRINE. [Concomitant]
     Active Substance: AZATHIOPRINE
     Indication: PRODUCT USED FOR UNKNOWN INDICATION
     Dates: start: 20130101
  2. HUMIRA [Suspect]
     Active Substance: ADALIMUMAB
     Route: 058
     Dates: start: 201209
  3. HUMIRA [Suspect]
     Active Substance: ADALIMUMAB
     Dosage: LOADING DOSE WEEK 2
     Route: 058
     Dates: start: 201208, end: 201208
  4. HUMIRA [Suspect]
     Active Substance: ADALIMUMAB
     Indication: CROHN^S DISEASE
     Dosage: LOADING DOSE
     Route: 058
     Dates: start: 20120822, end: 20120822

REACTIONS (6)
  - Nephrolithiasis [Not Recovered/Not Resolved]
  - Ureterolithiasis [Not Recovered/Not Resolved]
  - Tuberculosis [Recovered/Resolved]
  - Nephrolithiasis [Recovered/Resolved]
  - Diarrhoea [Recovering/Resolving]
  - Gallbladder polyp [Unknown]

NARRATIVE: CASE EVENT DATE: 20130801
